FAERS Safety Report 14120755 (Version 3)
Quarter: 2018Q1

REPORT INFORMATION
  Report Type: Report from Study
  Country: FR (occurrence: FR)
  Receive Date: 20171024
  Receipt Date: 20180207
  Transmission Date: 20180508
  Serious: Yes (Death, Hospitalization, Other)
  Sender: FDA-Public Use
  Company Number: FR-BRISTOL-MYERS SQUIBB COMPANY-BMS-2017-095464

PATIENT
  Age: 71 Year
  Sex: Male
  Weight: 76.3 kg

DRUGS (9)
  1. ENTECAVIR. [Suspect]
     Active Substance: ENTECAVIR
     Indication: HEPATITIS B
     Dosage: 0.5 MG, QD
     Route: 065
     Dates: start: 20091110, end: 20161030
  2. REPAGLINIDE. [Concomitant]
     Active Substance: REPAGLINIDE
     Indication: TYPE 2 DIABETES MELLITUS
     Dosage: 1 MG, QD
     Route: 065
     Dates: end: 20161030
  3. LASILIX                            /00032601/ [Concomitant]
     Active Substance: FUROSEMIDE
     Indication: HYPERTENSION
     Dosage: 40 MG, UNK
     Route: 065
     Dates: end: 20161030
  4. METFORMIN [Concomitant]
     Active Substance: METFORMIN HYDROCHLORIDE
     Indication: TYPE 2 DIABETES MELLITUS
     Dosage: 250 MG, TID
     Route: 065
     Dates: end: 20161030
  5. LOXEN                              /00639802/ [Concomitant]
     Active Substance: NICARDIPINE HYDROCHLORIDE
     Indication: HYPERTENSION
     Dosage: 50 MG, BID
     Route: 065
     Dates: end: 20161030
  6. DIAMICRON [Concomitant]
     Active Substance: GLICLAZIDE
     Indication: TYPE 2 DIABETES MELLITUS
     Dosage: 60 MG, QD
     Route: 065
     Dates: end: 20161030
  7. PERMIXON [Concomitant]
     Active Substance: HERBALS\SAW PALMETTO
     Indication: BENIGN PROSTATIC HYPERPLASIA
     Dosage: 160 MG, BID
     Route: 065
  8. JANUMET [Concomitant]
     Active Substance: METFORMIN HYDROCHLORIDE\SITAGLIPTIN PHOSPHATE
     Indication: TYPE 2 DIABETES MELLITUS
     Dosage: 1 MG, QD
     Route: 065
     Dates: end: 20161030
  9. RAMIPRIL. [Concomitant]
     Active Substance: RAMIPRIL
     Indication: HYPERTENSION
     Dosage: 5 MG, UNK
     Route: 065
     Dates: end: 20161030

REACTIONS (11)
  - Renal failure [Unknown]
  - Anaemia [Unknown]
  - Limb discomfort [Unknown]
  - Hypoaesthesia [Unknown]
  - Eschar [Unknown]
  - Prostate cancer [Fatal]
  - Fall [Unknown]
  - Plasma cell myeloma [Unknown]
  - Rhabdomyolysis [Unknown]
  - Thrombocytopenia [Unknown]
  - Bronchopneumopathy [Unknown]

NARRATIVE: CASE EVENT DATE: 20120905
